FAERS Safety Report 12428636 (Version 15)
Quarter: 2017Q1

REPORT INFORMATION
  Report Type: Report from Study
  Country: US (occurrence: US)
  Receive Date: 20160602
  Receipt Date: 20170330
  Transmission Date: 20170428
  Serious: Yes (Other)
  Sender: FDA-Public Use
  Company Number: US-GILEAD-2016-0216525

PATIENT
  Age: 47 Year
  Sex: Female
  Weight: 72 kg

DRUGS (43)
  1. ORENITRAM [Concomitant]
     Active Substance: TREPROSTINIL
     Indication: PULMONARY HYPERTENSION
     Dosage: 2.5 MG, TID
     Route: 048
     Dates: start: 20151229, end: 20160309
  2. PROMETHAZINE [Concomitant]
     Active Substance: PROMETHAZINE\PROMETHAZINE HYDROCHLORIDE
  3. VITAMIN B COMPLEX [Concomitant]
     Active Substance: CYANOCOBALAMIN\DEXPANTHENOL\NIACINAMIDE\PYRIDOXINE HYDROCHLORIDE\RIBOFLAVIN 5^-PHOSPHATE SODIUM\THIAMINE HYDROCHLORIDE\VITAMIN B COMPLEX
  4. METOLAZONE. [Concomitant]
     Active Substance: METOLAZONE
  5. OXYGEN. [Concomitant]
     Active Substance: OXYGEN
  6. IRON [Concomitant]
     Active Substance: IRON
  7. METHAMPHETAMINE [Concomitant]
     Active Substance: METHAMPHETAMINE
  8. REVATIO [Concomitant]
     Active Substance: SILDENAFIL CITRATE
  9. ELAVIL [Concomitant]
     Active Substance: AMITRIPTYLINE HYDROCHLORIDE
  10. CELEBREX [Concomitant]
     Active Substance: CELECOXIB
  11. KLOR-CON [Concomitant]
     Active Substance: POTASSIUM CHLORIDE
  12. TORSEMIDE. [Concomitant]
     Active Substance: TORSEMIDE
  13. ACIPHEX [Concomitant]
     Active Substance: RABEPRAZOLE SODIUM
  14. AMBRISENTAN [Suspect]
     Active Substance: AMBRISENTAN
     Indication: SUBSTANCE USE
     Dosage: 10 MG, QD
     Route: 048
     Dates: start: 20130404
  15. ADCIRCA [Concomitant]
     Active Substance: TADALAFIL
  16. ONDANSETRAN [Concomitant]
     Active Substance: ONDANSETRON HYDROCHLORIDE
  17. AMBRISENTAN [Suspect]
     Active Substance: AMBRISENTAN
     Indication: PULMONARY ARTERIAL HYPERTENSION
     Dosage: 10 MG, UNK
     Route: 048
     Dates: start: 20110208
  18. SYNTHROID [Concomitant]
     Active Substance: LEVOTHYROXINE SODIUM
  19. VITAMIN B12 [Concomitant]
     Active Substance: CYANOCOBALAMIN
  20. ALPRAZOLAM. [Concomitant]
     Active Substance: ALPRAZOLAM
  21. FERROUS GLUCONATE [Concomitant]
     Active Substance: FERROUS GLUCONATE
  22. FLUTICASONE. [Concomitant]
     Active Substance: FLUTICASONE
  23. MELOXICAM. [Concomitant]
     Active Substance: MELOXICAM
  24. CALCIUM [Concomitant]
     Active Substance: CALCIUM
  25. TRAMADOL. [Concomitant]
     Active Substance: TRAMADOL
  26. DIGOXIN. [Concomitant]
     Active Substance: DIGOXIN
  27. ASCORBIC ACID. [Concomitant]
     Active Substance: ASCORBIC ACID
  28. DEMADEX [Concomitant]
     Active Substance: TORSEMIDE
  29. BIOTIN [Concomitant]
     Active Substance: BIOTIN
  30. REQUIP [Concomitant]
     Active Substance: ROPINIROLE HYDROCHLORIDE
  31. ALDACTONE [Concomitant]
     Active Substance: SPIRONOLACTONE
  32. COLACE [Concomitant]
     Active Substance: DOCUSATE SODIUM
  33. ATIVAN [Concomitant]
     Active Substance: LORAZEPAM
  34. INVANZ [Concomitant]
     Active Substance: ERTAPENEM SODIUM
  35. ACETYLSALICYLIC ACID [Concomitant]
     Active Substance: ASPIRIN
  36. DIPHENHYDRAMINE. [Concomitant]
     Active Substance: DIPHENHYDRAMINE
  37. PRILOSEC [Concomitant]
     Active Substance: OMEPRAZOLE MAGNESIUM
  38. SIMVASTATIN. [Concomitant]
     Active Substance: SIMVASTATIN
  39. RANITIDINE. [Concomitant]
     Active Substance: RANITIDINE
  40. UPTRAVI [Suspect]
     Active Substance: SELEXIPAG
     Indication: PRODUCT USED FOR UNKNOWN INDICATION
     Dosage: 1600 UG, BID
     Route: 065
  41. MORPHINE HYDROCHLORIDE [Concomitant]
     Active Substance: MORPHINE HYDROCHLORIDE
  42. XARELTO [Concomitant]
     Active Substance: RIVAROXABAN
  43. SINEMET [Concomitant]
     Active Substance: CARBIDOPA\LEVODOPA

REACTIONS (28)
  - Cardiac failure acute [Unknown]
  - Dyspnoea exertional [Unknown]
  - Dizziness [Unknown]
  - Troponin increased [Unknown]
  - Presyncope [Not Recovered/Not Resolved]
  - Ascites [Unknown]
  - Chest pain [Unknown]
  - Dyspnoea [Not Recovered/Not Resolved]
  - Dizziness [Unknown]
  - Oedema peripheral [Unknown]
  - Viral infection [Unknown]
  - Pulmonary arterial hypertension [Not Recovered/Not Resolved]
  - Joint dislocation [Unknown]
  - Pulmonary pain [Unknown]
  - Syncope [Unknown]
  - Loss of consciousness [Unknown]
  - Nasopharyngitis [Unknown]
  - Anxiety [Unknown]
  - Abdominal discomfort [Unknown]
  - Hypotension [Unknown]
  - Weight increased [Unknown]
  - Spinal osteoarthritis [Unknown]
  - Musculoskeletal pain [Unknown]
  - Syncope [Not Recovered/Not Resolved]
  - Vomiting [Unknown]
  - Pain [Unknown]
  - Fall [Not Recovered/Not Resolved]
  - Pleural effusion [Unknown]

NARRATIVE: CASE EVENT DATE: 2016
